FAERS Safety Report 5196896-9 (Version None)
Quarter: 2007Q1

REPORT INFORMATION
  Report Type: 
  Country: None (occurrence: None)
  Receive Date: 20070103
  Receipt Date: 20061220
  Transmission Date: 20070707
  Serious: Yes (Hospitalization)
  Sender: FDA-Public Use
  Company Number: KR-BAYER-200616543GDS

PATIENT
  Age: 51 Year
  Sex: Male
  Weight: 66 kg

DRUGS (8)
  1. SORAFENIB [Suspect]
     Indication: RENAL CELL CARCINOMA STAGE UNSPECIFIED
     Dosage: TOTAL DAILY DOSE: 800 MG
     Route: 048
     Dates: start: 20061130
  2. ALDACTONE [Concomitant]
     Indication: DIURETIC THERAPY
     Route: 048
     Dates: start: 20061130
  3. LASIX [Concomitant]
     Indication: DIURETIC THERAPY
     Route: 048
     Dates: start: 20061130
  4. MEGACE [Concomitant]
     Indication: ANOREXIA
     Route: 048
     Dates: start: 20061130
  5. MS CONTIN [Concomitant]
     Indication: PAIN PROPHYLAXIS
     Route: 048
     Dates: start: 20061130
  6. SINIL-M [Concomitant]
     Indication: CONSTIPATION PROPHYLAXIS
     Route: 048
     Dates: start: 20061130
  7. TANTUM [Concomitant]
     Indication: ORAL INFECTION
     Route: 048
     Dates: start: 20061214
  8. CHLORHEXIDINE [Concomitant]
     Indication: ORAL INFECTION
     Route: 048
     Dates: start: 20061214

REACTIONS (3)
  - DYSPHAGIA [None]
  - HYPERHIDROSIS [None]
  - STOMATITIS [None]
